FAERS Safety Report 23796027 (Version 1)
Quarter: 2024Q2

REPORT INFORMATION
  Report Type: Spontaneous
  Country: US (occurrence: US)
  Receive Date: 20240429
  Receipt Date: 20240429
  Transmission Date: 20240716
  Serious: Yes (Hospitalization, Other)
  Sender: FDA-Public Use
  Company Number: US-JNJFOC-20240468672

PATIENT
  Age: 72 Year
  Sex: Male

DRUGS (4)
  1. XARELTO [Suspect]
     Active Substance: RIVAROXABAN
     Indication: Myocardial infarction
     Route: 048
     Dates: start: 201503
  2. XARELTO [Suspect]
     Active Substance: RIVAROXABAN
     Indication: Atrial fibrillation
  3. XARELTO [Suspect]
     Active Substance: RIVAROXABAN
     Indication: Cerebrovascular accident prophylaxis
  4. TIKOSYN [Concomitant]
     Active Substance: DOFETILIDE

REACTIONS (4)
  - Blood pressure decreased [Recovered/Resolved]
  - Cerebrovascular accident [Recovering/Resolving]
  - Cardiac ablation [Unknown]
  - Biopsy kidney [Unknown]

NARRATIVE: CASE EVENT DATE: 20231101
